FAERS Safety Report 8545216-8 (Version None)
Quarter: 2012Q3

REPORT INFORMATION
  Report Type: 
  Country: None (occurrence: None)
  Receive Date: 20120727
  Receipt Date: 20120514
  Transmission Date: 20120928
  Serious: No
  Sender: FDA-Public Use
  Company Number: US-009507513-2012SP023076

PATIENT

DRUGS (1)
  1. CLARITIN [Suspect]
     Indication: SEASONAL ALLERGY
     Dosage: 10 MG, ONCE
     Route: 048
     Dates: start: 20120403

REACTIONS (5)
  - NASAL DRYNESS [None]
  - DRY MOUTH [None]
  - DRY THROAT [None]
  - DYSPNOEA [None]
  - DYSPHAGIA [None]
